FAERS Safety Report 8455513-2 (Version None)
Quarter: 2012Q2

REPORT INFORMATION
  Report Type: 
  Country: None (occurrence: None)
  Receive Date: 20120621
  Receipt Date: 20120612
  Transmission Date: 20120825
  Serious: Yes (Other)
  Sender: FDA-Public Use
  Company Number: JP-JNJFOC-20120104826

PATIENT
  Sex: Female
  Weight: 54 kg

DRUGS (16)
  1. FOLIC ACID [Concomitant]
     Indication: PROPHYLAXIS
     Route: 048
  2. URSODIOL [Concomitant]
     Route: 048
  3. PYRIDOXAL PHOSPHATE [Concomitant]
     Indication: PROPHYLAXIS
     Route: 048
  4. SIMPONI [Suspect]
     Route: 058
     Dates: start: 20111028, end: 20111028
  5. LOXOPROFEN [Concomitant]
     Indication: RHEUMATOID ARTHRITIS
     Route: 048
  6. SIMPONI [Suspect]
     Route: 058
     Dates: start: 20120112, end: 20120112
  7. METHOTREXATE [Suspect]
     Indication: PRODUCT USED FOR UNKNOWN INDICATION
     Route: 048
     Dates: start: 20111222, end: 20111223
  8. ISONIAZID [Suspect]
     Indication: PROPHYLAXIS
     Route: 048
     Dates: start: 20111129
  9. ISONIAZID [Suspect]
     Route: 048
     Dates: start: 20111028, end: 20111128
  10. LANSOPRAZOLE [Concomitant]
     Route: 048
     Dates: start: 20110318
  11. SIMPONI [Suspect]
     Indication: RHEUMATOID ARTHRITIS
     Route: 058
     Dates: start: 20111129, end: 20111129
  12. PREDNISOLONE [Concomitant]
     Indication: RHEUMATOID ARTHRITIS
     Route: 048
     Dates: end: 20111129
  13. MISOPROSTOL [Concomitant]
     Route: 048
  14. ALENDRONATE SODIUM [Concomitant]
     Route: 048
  15. BONOTEO [Concomitant]
     Indication: PROPHYLAXIS
     Route: 048
  16. PREDNISOLONE [Concomitant]
     Route: 048
     Dates: start: 20111130

REACTIONS (2)
  - ERYSIPELAS [None]
  - HEPATIC FUNCTION ABNORMAL [None]
